FAERS Safety Report 17892487 (Version 5)
Quarter: 2020Q4

REPORT INFORMATION
  Report Type: Spontaneous
  Country: JP (occurrence: JP)
  Receive Date: 20200612
  Receipt Date: 20201207
  Transmission Date: 20210113
  Serious: Yes (Death, Life-Threatening, Hospitalization, Disabling, Other)
  Sender: FDA-Public Use
  Company Number: JP-GILEAD-2020-0471867

PATIENT
  Age: 37 Year
  Sex: Female
  Weight: 55.5 kg

DRUGS (12)
  1. EMTRICITABINE/TENOFOVIR ALAFENAMIDE [Suspect]
     Active Substance: EMTRICITABINE\TENOFOVIR
     Indication: ACQUIRED IMMUNODEFICIENCY SYNDROME
     Dosage: 1 DOSAGE FORM, QD
     Route: 048
     Dates: start: 20170527
  2. TESTOSTERONE ENANTATE [Concomitant]
     Active Substance: TESTOSTERONE
     Dosage: ONCE EVERY 2 WEEK, INJECTION
     Dates: start: 1998
  3. SAMTIREL [Concomitant]
     Active Substance: ATOVAQUONE
     Indication: PNEUMOCYSTIS JIROVECII PNEUMONIA
     Dosage: 10 ML ONCE OR TWICE A DAY
     Route: 048
     Dates: start: 20170531
  4. BAKTAR [Concomitant]
     Active Substance: SULFAMETHOXAZOLE\TRIMETHOPRIM
     Indication: PNEUMOCYSTIS JIROVECII PNEUMONIA
     Dosage: 3 DOSAGE FORM, TID
     Route: 048
     Dates: start: 20170519, end: 20170530
  5. BAYASPIRIN [Concomitant]
     Active Substance: ASPIRIN
     Indication: PULMONARY ARTERY STENOSIS
     Dosage: 100 MG, QD
     Route: 048
     Dates: start: 20170509
  6. CLARITH [Concomitant]
     Active Substance: CLARITHROMYCIN
     Indication: SINUSITIS
     Dosage: 200 MG, QD
     Route: 048
     Dates: start: 20170516, end: 20170529
  7. TIVICAY [Suspect]
     Active Substance: DOLUTEGRAVIR SODIUM
     Indication: ACQUIRED IMMUNODEFICIENCY SYNDROME
     Dosage: 1 DOSAGE FORM, QD
     Route: 048
     Dates: start: 20170527
  8. DIFLUCAN [Concomitant]
     Active Substance: FLUCONAZOLE
     Indication: ORAL CANDIDIASIS
     Dosage: 100 MG, QD
     Route: 048
     Dates: start: 20170518, end: 20170530
  9. AMLODIN [Concomitant]
     Active Substance: AMLODIPINE BESYLATE
     Indication: HYPERTENSION
     Dosage: 2.5 MG, QD
     Route: 048
     Dates: start: 20170509
  10. AMLODIN [Concomitant]
     Active Substance: AMLODIPINE BESYLATE
     Dosage: 5 MG, ONCE OR TWICCE A DAY
     Route: 048
     Dates: start: 20170517
  11. NEXIUM [Concomitant]
     Active Substance: ESOMEPRAZOLE MAGNESIUM
     Indication: PROPHYLAXIS
     Dosage: 20 MG, QD
     Route: 048
     Dates: start: 20170512
  12. FAMOTIDINE. [Concomitant]
     Active Substance: FAMOTIDINE
     Indication: GASTRIC MUCOSAL LESION
     Dosage: 10 MG, BID
     Route: 048
     Dates: start: 20170521

REACTIONS (3)
  - Arrhythmia [Fatal]
  - Immune reconstitution inflammatory syndrome [Recovering/Resolving]
  - Encephalitis viral [Recovering/Resolving]

NARRATIVE: CASE EVENT DATE: 2017
